FAERS Safety Report 7323527-1 (Version None)
Quarter: 2011Q1

REPORT INFORMATION
  Report Type: 
  Country: None (occurrence: None)
  Receive Date: 20110301
  Receipt Date: 20110215
  Transmission Date: 20110831
  Serious: Yes (Other)
  Sender: FDA-Public Use
  Company Number: FR-ROCHE-754713

PATIENT
  Sex: Female
  Weight: 52 kg

DRUGS (4)
  1. HERCEPTIN [Suspect]
     Route: 065
  2. XELODA [Concomitant]
     Indication: BREAST CANCER
     Route: 048
     Dates: start: 20091101, end: 20100301
  3. HERCEPTIN [Suspect]
     Indication: BREAST CANCER
     Route: 065
     Dates: start: 20070701, end: 20090201
  4. HERCEPTIN [Suspect]
     Route: 065
     Dates: start: 20091110

REACTIONS (5)
  - KERATITIS [None]
  - DRY EYE [None]
  - DERMATITIS ATOPIC [None]
  - LACRIMATION INCREASED [None]
  - FATIGUE [None]
